FAERS Safety Report 23451261 (Version 3)
Quarter: 2024Q1

REPORT INFORMATION
  Report Type: Report from Study
  Country: DE (occurrence: DE)
  Receive Date: 20240129
  Receipt Date: 20240214
  Transmission Date: 20240410
  Serious: Yes (Other)
  Sender: FDA-Public Use
  Company Number: DE-002147023-NVSC2024DE016996

PATIENT
  Sex: Female

DRUGS (10)
  1. BEOVU [Suspect]
     Active Substance: BROLUCIZUMAB-DBLL
     Indication: Neovascular age-related macular degeneration
     Dosage: 0.05 ML (= 6 MG BROLUCIZUMAB) ONCE
     Route: 031
     Dates: start: 20220922, end: 20220922
  2. BEOVU [Suspect]
     Active Substance: BROLUCIZUMAB-DBLL
     Dosage: 0.05 ML (= 6 MG BROLUCIZUMAB) ONCE
     Route: 031
     Dates: start: 20221020, end: 20221020
  3. BEOVU [Suspect]
     Active Substance: BROLUCIZUMAB-DBLL
     Dosage: 0.05 ML (= 6 MG BROLUCIZUMAB) ONCE
     Route: 031
     Dates: start: 20221117, end: 20221117
  4. BEOVU [Suspect]
     Active Substance: BROLUCIZUMAB-DBLL
     Dosage: 0.05 ML (= 6 MG BROLUCIZUMAB) ONCE
     Route: 031
     Dates: start: 20230112, end: 20230112
  5. BEOVU [Suspect]
     Active Substance: BROLUCIZUMAB-DBLL
     Dosage: 0.05 ML (= 6 MG BROLUCIZUMAB) ONCE
     Route: 031
     Dates: start: 20230323, end: 20230323
  6. BEOVU [Suspect]
     Active Substance: BROLUCIZUMAB-DBLL
     Dosage: 0.05 ML (= 6 MG BROLUCIZUMAB) ONCE
     Route: 031
     Dates: start: 20230517, end: 20230517
  7. BEOVU [Suspect]
     Active Substance: BROLUCIZUMAB-DBLL
     Dosage: 0.05 ML (= 6 MG BROLUCIZUMAB) ONCE
     Route: 031
     Dates: start: 20230726, end: 20230726
  8. BEOVU [Suspect]
     Active Substance: BROLUCIZUMAB-DBLL
     Dosage: 0.05 ML (= 6 MG BROLUCIZUMAB) ONCE
     Route: 031
     Dates: start: 20230920, end: 20230920
  9. BEOVU [Suspect]
     Active Substance: BROLUCIZUMAB-DBLL
     Dosage: 0.05 ML (= 6 MG BROLUCIZUMAB) ONCE
     Route: 031
     Dates: start: 20231115, end: 20231115
  10. BEOVU [Suspect]
     Active Substance: BROLUCIZUMAB-DBLL
     Dosage: 0.05 ML (= 6 MG BROLUCIZUMAB) ONCE
     Route: 031
     Dates: start: 20240112, end: 20240112

REACTIONS (1)
  - Retinal oedema [Not Recovered/Not Resolved]

NARRATIVE: CASE EVENT DATE: 20240112
